FAERS Safety Report 4680604-1 (Version None)
Quarter: 2005Q2

REPORT INFORMATION
  Report Type: 
  Country: None (occurrence: None)
  Receive Date: 20050531
  Receipt Date: 20041118
  Transmission Date: 20051028
  Serious: Yes (Hospitalization)
  Sender: FDA-Public Use
  Company Number: 200423954US

PATIENT
  Age: 37 Year
  Sex: Female

DRUGS (1)
  1. SOLU-MEDROL [Suspect]
     Indication: ILL-DEFINED DISORDER
     Dosage: UNKNOWN (40 MG, UNKNOWN), INTRAVENOUS
     Route: 042
     Dates: start: 20041006, end: 20041010

REACTIONS (1)
  - SERRATIA INFECTION [None]
